FAERS Safety Report 23606864 (Version 1)
Quarter: 2024Q1

REPORT INFORMATION
  Report Type: Spontaneous
  Country: US (occurrence: US)
  Receive Date: 20240307
  Receipt Date: 20240307
  Transmission Date: 20240410
  Serious: Yes (Other)
  Sender: FDA-Public Use
  Company Number: US-FreseniusKabi-FK202403855

PATIENT
  Age: 81 Year
  Sex: Female

DRUGS (2)
  1. ROPIVACAINE [Suspect]
     Active Substance: ROPIVACAINE
     Indication: Local anaesthesia
     Dosage: FORM OF ADMIN: INJECTION
  2. MIDAZOLAM [Concomitant]
     Active Substance: MIDAZOLAM
     Indication: Local anaesthesia

REACTIONS (1)
  - Seizure [Recovered/Resolved]
